FAERS Safety Report 8145632-2 (Version None)
Quarter: 2012Q1

REPORT INFORMATION
  Report Type: 
  Country: None (occurrence: None)
  Receive Date: 20120217
  Receipt Date: 20110401
  Transmission Date: 20120608
  Serious: Yes (Other)
  Sender: FDA-Public Use
  Company Number: US-ABBOTT-11P-163-0716121-00

PATIENT
  Sex: Male
  Weight: 102.15 kg

DRUGS (4)
  1. BYSTOLIC [Concomitant]
     Indication: CARDIAC DISORDER
  2. BYSTOLIC [Concomitant]
     Indication: PROPHYLAXIS
  3. BYSTOLIC [Concomitant]
     Indication: HYPERTENSION
  4. SIMCOR [Suspect]
     Indication: BLOOD CHOLESTEROL INCREASED
     Dates: start: 20100801

REACTIONS (1)
  - TENDON RUPTURE [None]
